FAERS Safety Report 16595080 (Version 5)
Quarter: 2019Q3

REPORT INFORMATION
  Report Type: Spontaneous
  Country: JP (occurrence: JP)
  Receive Date: 20190718
  Receipt Date: 20190903
  Transmission Date: 20191004
  Serious: Yes (Death, Hospitalization, Other)
  Sender: FDA-Public Use
  Company Number: JP-009507513-1907JPN001232J

PATIENT
  Age: 70 Year
  Sex: Female
  Weight: 45 kg

DRUGS (5)
  1. OXINORM [Concomitant]
     Indication: CANCER PAIN
     Dosage: 9 TIMES DAILY
     Route: 065
     Dates: start: 20190602
  2. KEYTRUDA [Suspect]
     Active Substance: PEMBROLIZUMAB
     Indication: NON-SMALL CELL LUNG CANCER
     Dosage: 200 MILLIGRAM, Q3W
     Route: 041
     Dates: start: 20190604, end: 20190604
  3. LOXONIN [Concomitant]
     Active Substance: LOXOPROFEN SODIUM
     Indication: CANCER PAIN
     Dosage: UNKNOWN
     Route: 065
     Dates: start: 20190314
  4. OXYCODONE HYDROCHLORIDE. [Concomitant]
     Active Substance: OXYCODONE HYDROCHLORIDE
     Indication: CANCER PAIN
     Dosage: 240 MILLIGRAM /DAY
     Route: 065
     Dates: start: 20190603
  5. LYRICA [Concomitant]
     Active Substance: PREGABALIN
     Indication: CANCER PAIN
     Dosage: UNKNOWN
     Route: 065
     Dates: start: 20190314

REACTIONS (5)
  - Neutrophil count decreased [Fatal]
  - Contusion [Not Recovered/Not Resolved]
  - Pancytopenia [Not Recovered/Not Resolved]
  - Platelet count decreased [Fatal]
  - Diarrhoea [Recovered/Resolved]

NARRATIVE: CASE EVENT DATE: 2019
